FAERS Safety Report 8730921 (Version 2)
Quarter: 2012Q4

REPORT INFORMATION
  Report Type: Spontaneous
  Country: DE (occurrence: None)
  Receive Date: 20120731
  Receipt Date: 20120813
  Transmission Date: 20130627
  Serious: Yes (Other)
  Sender: FDA-Public Use
  Company Number: GER/GER/12/0025076

PATIENT
  Age: 56 Year
  Sex: Male

DRUGS (4)
  1. SIMVASTATIN [Suspect]
     Indication: PRODUCT USED FOR UNKNOWN INDICATION
     Dosage: ORAL
     Route: 048
  2. BISOPROLOL FUMARATE [Suspect]
     Dosage: ORAL
     Route: 048
  3. INSPRA [Suspect]
     Indication: PRODUCT USED FOR UNKNOWN INDICATION
  4. IVABRADINE [Suspect]
     Indication: PRODUCT USED FOR UNKNOWN INDICATION

REACTIONS (1)
  - LONG QT SYNDROME [None]
